FAERS Safety Report 10964192 (Version 5)
Quarter: 2015Q2

REPORT INFORMATION
  Report Type: Report from Study
  Country: US (occurrence: US)
  Receive Date: 20150329
  Receipt Date: 20150521
  Transmission Date: 20150821
  Serious: Yes (Hospitalization)
  Sender: FDA-Public Use
  Company Number: PHEH2015US005493

PATIENT
  Sex: Male
  Weight: 54.4 kg

DRUGS (2)
  1. CLOZARIL [Suspect]
     Active Substance: CLOZAPINE
     Indication: PRODUCT USED FOR UNKNOWN INDICATION
     Route: 065
  2. CLOZAPINE. [Suspect]
     Active Substance: CLOZAPINE
     Indication: PRODUCT USED FOR UNKNOWN INDICATION
     Route: 065

REACTIONS (8)
  - Upper limb fracture [Unknown]
  - Decreased appetite [Unknown]
  - Constipation [Recovered/Resolved]
  - Laceration [Recovered/Resolved]
  - Underweight [Unknown]
  - Pain in extremity [Unknown]
  - Fall [Recovered/Resolved]
  - Malnutrition [Unknown]
